FAERS Safety Report 7657734-5 (Version None)
Quarter: 2011Q3

REPORT INFORMATION
  Report Type: 
  Country: None (occurrence: None)
  Receive Date: 20110804
  Receipt Date: 20110708
  Transmission Date: 20111222
  Serious: No
  Sender: FDA-Public Use
  Company Number: US-BAYER-2011-060365

PATIENT
  Age: 91 Year
  Sex: Female
  Weight: 63 kg

DRUGS (4)
  1. FUROSEMIDE [Concomitant]
  2. ALEVE (CAPLET) [Suspect]
     Indication: PRODUCT USED FOR UNKNOWN INDICATION
     Dosage: 1 DF, PRN
     Route: 048
     Dates: start: 20060707
  3. NAPROXEN (ALEVE) [Suspect]
     Indication: MYALGIA
     Dosage: 1 DF, PRN
     Route: 048
     Dates: start: 20110601
  4. LEVOTHYROXINE SODIUM [Concomitant]

REACTIONS (1)
  - DIARRHOEA [None]
